FAERS Safety Report 6703037-2 (Version None)
Quarter: 2010Q2

REPORT INFORMATION
  Report Type: 
  Country: None (occurrence: None)
  Receive Date: 20100427
  Receipt Date: 20100420
  Transmission Date: 20101027
  Serious: Yes (Other)
  Sender: FDA-Public Use
  Company Number: 2010SP022972

PATIENT
  Sex: Female

DRUGS (2)
  1. TEMODAR [Suspect]
     Indication: NEUROENDOCRINE TUMOUR
     Dosage: 300 MG;QD
  2. XELODA [Concomitant]

REACTIONS (1)
  - HEPATIC ENZYME INCREASED [None]
